FAERS Safety Report 5375236-6 (Version None)
Quarter: 2007Q2

REPORT INFORMATION
  Report Type: 
  Country: None (occurrence: None)
  Receive Date: 20070629
  Receipt Date: 20070619
  Transmission Date: 20071010
  Serious: Yes (Death, Hospitalization)
  Sender: FDA-Public Use
  Company Number: US-KINGPHARMUSA00001-K200700769

PATIENT

DRUGS (1)
  1. SEPTRA [Suspect]
     Indication: URINARY TRACT INFECTION
     Dates: start: 20070501

REACTIONS (6)
  - BRAIN DEATH [None]
  - BRAIN OEDEMA [None]
  - CONFUSIONAL STATE [None]
  - CSF PROTEIN [None]
  - DELIRIUM [None]
  - NERVOUS SYSTEM DISORDER [None]
